FAERS Safety Report 16883537 (Version 2)
Quarter: 2020Q1

REPORT INFORMATION
  Report Type: Spontaneous
  Country: ES (occurrence: ES)
  Receive Date: 20191004
  Receipt Date: 20200111
  Transmission Date: 20200409
  Serious: Yes (Life-Threatening, Hospitalization)
  Sender: FDA-Public Use
  Company Number: ES-TEVA-2019-ES-1116981

PATIENT
  Age: 81 Month
  Sex: Female
  Weight: 90 kg

DRUGS (11)
  1. CLINDAMICINA (616A) [Suspect]
     Active Substance: CLINDAMYCIN
     Indication: SKIN ULCER
     Dosage: 300MG CAPSULAS 2-2-2-0
     Route: 048
     Dates: start: 20190902, end: 20190905
  2. MIRTAZAPINA (2704A) [Suspect]
     Active Substance: MIRTAZAPINE
     Indication: DEPRESSED MOOD
     Dosage: 15 MG COMPRIMIDOS 0-0-1-0
     Route: 048
     Dates: start: 20180628, end: 20190909
  3. PARACETAMOL (12A) [Concomitant]
     Active Substance: ACETAMINOPHEN
     Indication: BACK PAIN
     Dosage: 5850 MILLIGRAM DAILY; 650 MG TABLETS 1-1-1-0
     Route: 048
     Dates: start: 20151030, end: 20190909
  4. FUROSEMIDA (1615A) [Concomitant]
     Active Substance: FUROSEMIDE
     Indication: CARDIAC FAILURE CONGESTIVE
     Dosage: 40 MG TABLETS 1-0-0-0
     Route: 048
     Dates: start: 20160321, end: 20190909
  5. SINTROM UNO GEIGY 1MG 60 COMPRIMIDOS [Concomitant]
     Indication: ATRIAL FLUTTER
     Dosage: 1-0-0-0
     Route: 048
     Dates: start: 20130124, end: 20190909
  6. LORMETAZEPAM (88A) [Concomitant]
     Active Substance: LORMETAZEPAM
     Indication: INSOMNIA
     Dosage: 2 MG TABLETS 0-0-0-1
     Route: 048
     Dates: start: 20120203, end: 20190909
  7. ALDACTONE [Concomitant]
     Active Substance: SPIRONOLACTONE
     Indication: CARDIAC FAILURE CONGESTIVE
     Dosage: 1-0-0-0
     Route: 048
     Dates: start: 20160321, end: 20190909
  8. CLOTRIMAZOL CANESMED 10 MG/G CREMA EFG , 1 TUBO DE 30 G [Concomitant]
     Dosage: 1-0-1-0
     Route: 061
     Dates: start: 20180727, end: 20190909
  9. BISOPROLOL (2328A) [Concomitant]
     Active Substance: BISOPROLOL
     Indication: CARDIAC FAILURE CONGESTIVE
     Dosage: 5 MG TABLETS 1-0-0-0
     Route: 048
     Dates: start: 20160321, end: 20190909
  10. LOSARTAN (7157A) [Concomitant]
     Active Substance: LOSARTAN
     Indication: HYPERTENSION
     Dosage: 100 MG TABLETS 1-0-1-0
     Route: 048
     Dates: start: 20180821, end: 20190909
  11. NOLOTIL 575 MG CAPSULAS DURAS, 20 C?PSULAS [Concomitant]
     Active Substance: METAMIZOLE MAGNESIUM
     Indication: PERIARTHRITIS
     Dosage: 1-1-1-0
     Route: 048
     Dates: start: 20131105, end: 20190909

REACTIONS (1)
  - Toxic epidermal necrolysis [Recovering/Resolving]

NARRATIVE: CASE EVENT DATE: 20190909
